FAERS Safety Report 6470818-2 (Version None)
Quarter: 2009Q4

REPORT INFORMATION
  Report Type: 
  Country: None (occurrence: None)
  Receive Date: 20091203
  Receipt Date: 20091125
  Transmission Date: 20100525
  Serious: Yes (Hospitalization)
  Sender: FDA-Public Use
  Company Number: JP-ABBOTT-09P-087-0610746-00

PATIENT
  Sex: Male
  Weight: 62 kg

DRUGS (3)
  1. KLARICID TABLETS [Suspect]
     Indication: HELICOBACTER GASTRITIS
     Route: 048
     Dates: start: 20091105, end: 20091111
  2. PARIET [Concomitant]
     Indication: HELICOBACTER GASTRITIS
     Route: 048
     Dates: start: 20091105, end: 20091111
  3. SAWACILLIN [Concomitant]
     Indication: HELICOBACTER GASTRITIS
     Route: 048
     Dates: start: 20091105, end: 20091111

REACTIONS (3)
  - DELIRIUM [None]
  - TINNITUS [None]
  - VERTIGO [None]
